FAERS Safety Report 25183681 (Version 2)
Quarter: 2025Q2

REPORT INFORMATION
  Report Type: Spontaneous
  Country: NO (occurrence: NO)
  Receive Date: 20250410
  Receipt Date: 20250602
  Transmission Date: 20250716
  Serious: Yes (Other)
  Sender: PFIZER
  Company Number: NO-PFIZER INC-202400086218

PATIENT
  Sex: Female

DRUGS (1)
  1. FRAGMIN [Suspect]
     Active Substance: DALTEPARIN SODIUM
     Dates: start: 2018, end: 2019

REACTIONS (3)
  - Eclampsia [Unknown]
  - Thrombosis [Unknown]
  - Maternal exposure during pregnancy [Unknown]
